FAERS Safety Report 7574456-X (Version None)
Quarter: 2011Q2

REPORT INFORMATION
  Report Type: 
  Country: None (occurrence: None)
  Receive Date: 20110627
  Receipt Date: 20110112
  Transmission Date: 20111010
  Serious: Yes (Hospitalization, Other)
  Sender: FDA-Public Use
  Company Number: US-BAYER-201036483NA

PATIENT
  Age: 37 Year
  Sex: Female
  Weight: 108.84 kg

DRUGS (18)
  1. LEVAQUIN [Concomitant]
     Indication: BACTERIAL INFECTION
     Route: 048
  2. VALTREX [Concomitant]
     Indication: PRODUCT USED FOR UNKNOWN INDICATION
     Route: 048
  3. CALCIUM W/VITAMIN D NOS [Concomitant]
     Indication: PRODUCT USED FOR UNKNOWN INDICATION
     Dosage: UNK UNK, QD
     Route: 048
  4. ULTRAM SR [Concomitant]
     Indication: BONE PAIN
     Dosage: 300 MG, QD
     Route: 048
  5. ZANAFLEX [Concomitant]
     Indication: MUSCLE SPASMS
     Dosage: 4 MG, UNK
     Route: 048
  6. IBUPROFEN [Concomitant]
     Indication: PRODUCT USED FOR UNKNOWN INDICATION
     Dosage: 600 MG, QID
     Route: 048
  7. SKELAXIN [Concomitant]
     Indication: MUSCLE SPASMS
     Dosage: 800 MG, TID
     Route: 048
  8. HYDROCODONE [Concomitant]
     Indication: PRODUCT USED FOR UNKNOWN INDICATION
     Dosage: 7.5 MG, PRN
     Route: 048
  9. HYDROCODONE [Concomitant]
     Dosage: 5 MG, PRN
  10. ALPRAZOLAM [Concomitant]
     Indication: PRODUCT USED FOR UNKNOWN INDICATION
     Dosage: 0.5 MG, UNK
     Route: 048
  11. TRAMADOL HCL CF [Concomitant]
     Indication: PAIN
     Dosage: 50 MG, QID
     Route: 048
  12. VITAMIN D [Concomitant]
     Indication: PRODUCT USED FOR UNKNOWN INDICATION
     Dosage: UNK UNK, QD
     Route: 048
  13. YASMIN [Suspect]
     Indication: ORAL CONTRACEPTION
     Dates: start: 20010101, end: 20100101
  14. DROSPIRENONE AND ETHINYL ESTRADIOL [Suspect]
  15. NAPROSYN [Concomitant]
     Indication: PRODUCT USED FOR UNKNOWN INDICATION
     Route: 048
  16. FUROSEMIDE [Concomitant]
     Indication: POLYURIA
     Dosage: 40 MG, QD
     Route: 048
  17. LEVOTHYROXINE SODIUM [Concomitant]
     Indication: THYROID DISORDER
     Dosage: 50 MCG/24HR, QD
  18. YAZ [Suspect]

REACTIONS (4)
  - CHOLELITHIASIS [None]
  - GALLBLADDER DISORDER [None]
  - CHOLECYSTITIS CHRONIC [None]
  - ABDOMINAL PAIN [None]
